FAERS Safety Report 15017358 (Version 2)
Quarter: 2018Q2

REPORT INFORMATION
  Report Type: Spontaneous
  Country: PH (occurrence: PH)
  Receive Date: 20180615
  Receipt Date: 20180621
  Transmission Date: 20180711
  Serious: Yes (Other)
  Sender: FDA-Public Use
  Company Number: PH-BAYER-2018-109858

PATIENT
  Age: 55 Year
  Sex: Male

DRUGS (3)
  1. CLOPIDOGREL [Suspect]
     Active Substance: CLOPIDOGREL BISULFATE
  2. ACETYLSALICYLIC ACID({=100 MG) [Suspect]
     Active Substance: ASPIRIN
     Indication: CORONARY ARTERY DISEASE
  3. HEPARIN [Suspect]
     Active Substance: HEPARIN SODIUM
     Dosage: 5000 U, UNK

REACTIONS (4)
  - Cardiac tamponade [None]
  - Myocardial haemorrhage [None]
  - Labelled drug-drug interaction medication error [None]
  - Coronary artery perforation [None]
